FAERS Safety Report 6081780-9 (Version None)
Quarter: 2009Q1

REPORT INFORMATION
  Report Type: 
  Country: None (occurrence: None)
  Receive Date: 20090218
  Receipt Date: 20090212
  Transmission Date: 20090719
  Serious: Yes (Death)
  Sender: FDA-Public Use
  Company Number: US-BAYER-200913184NA

PATIENT
  Age: 28 Year
  Sex: Male

DRUGS (2)
  1. AVELOX [Suspect]
     Indication: PHARYNGITIS STREPTOCOCCAL
  2. TUSSIONEX [Concomitant]

REACTIONS (1)
  - DEATH [None]
